FAERS Safety Report 6806254-6 (Version None)
Quarter: 2010Q2

REPORT INFORMATION
  Report Type: 
  Country: None (occurrence: None)
  Receive Date: 20100629
  Receipt Date: 20080318
  Transmission Date: 20101027
  Serious: No
  Sender: FDA-Public Use
  Company Number: US-PFIZER INC-2008009183

PATIENT
  Sex: Female
  Weight: 79.545 kg

DRUGS (4)
  1. TIKOSYN [Suspect]
     Indication: HEART RATE IRREGULAR
     Dates: start: 20070701
  2. TIKOSYN [Suspect]
     Indication: CARDIAC MURMUR
  3. WARFARIN [Concomitant]
  4. ALTACE [Concomitant]

REACTIONS (4)
  - ABDOMINAL DISCOMFORT [None]
  - DIARRHOEA [None]
  - DYSPNOEA [None]
  - FAECAL INCONTINENCE [None]
